FAERS Safety Report 4580343-1 (Version None)
Quarter: 2005Q1

REPORT INFORMATION
  Report Type: 
  Country: None (occurrence: None)
  Receive Date: 20050214
  Receipt Date: 20031230
  Transmission Date: 20050727
  Serious: No
  Sender: FDA-Public Use
  Company Number: US-GLAXOSMITHKLINE-A0490840A

PATIENT
  Age: 42 Year
  Sex: Female
  Weight: 52.3 kg

DRUGS (3)
  1. LAMICTAL [Suspect]
     Indication: ILL-DEFINED DISORDER
     Dosage: 300MG PER DAY
     Route: 048
     Dates: start: 20030717, end: 20040209
  2. ARIPIPRAZOLE [Suspect]
     Indication: DRUG USE FOR UNKNOWN INDICATION
     Dosage: 20MG UNKNOWN
     Route: 048
     Dates: start: 20030804, end: 20031003
  3. RISPERIDONE [Concomitant]
     Dosage: 1MG UNKNOWN
     Route: 048
     Dates: start: 20040107

REACTIONS (2)
  - AGEUSIA [None]
  - ANXIETY [None]
